FAERS Safety Report 14968391 (Version 2)
Quarter: 2018Q2

REPORT INFORMATION
  Report Type: Spontaneous
  Country: US (occurrence: US)
  Receive Date: 20180604
  Receipt Date: 20180611
  Transmission Date: 20180711
  Serious: Yes (Hospitalization)
  Sender: FDA-Public Use
  Company Number: US-AUROBINDO-AUR-APL-2018-029293

PATIENT
  Age: 27 Year
  Sex: Female

DRUGS (2)
  1. MINOCYCLINE [Suspect]
     Active Substance: MINOCYCLINE\MINOCYCLINE HYDROCHLORIDE
     Indication: HIDRADENITIS
     Route: 065
  2. RIFAMPICIN [Suspect]
     Active Substance: RIFAMPIN
     Indication: HIDRADENITIS
     Route: 065

REACTIONS (21)
  - Nausea [Recovered/Resolved]
  - Eosinophil count increased [Recovered/Resolved]
  - Rash [Recovered/Resolved]
  - Erythema [Recovered/Resolved]
  - Drug reaction with eosinophilia and systemic symptoms [Recovered/Resolved]
  - Fatigue [Recovered/Resolved]
  - Dizziness [Recovered/Resolved]
  - Lymphadenopathy [Recovered/Resolved]
  - Thrombocytopenia [Recovered/Resolved]
  - Leukocytosis [Recovered/Resolved]
  - International normalised ratio increased [Recovered/Resolved]
  - Rash maculo-papular [Recovered/Resolved]
  - Prothrombin time prolonged [Recovered/Resolved]
  - Condition aggravated [Recovered/Resolved]
  - Abdominal pain [Recovered/Resolved]
  - Face oedema [Recovered/Resolved]
  - Pyrexia [Recovered/Resolved]
  - Decreased appetite [Recovered/Resolved]
  - Liver function test increased [Recovered/Resolved]
  - Anaemia [Recovered/Resolved]
  - Lymphocyte count increased [Recovered/Resolved]
